FAERS Safety Report 26024821 (Version 2)
Quarter: 2025Q4

REPORT INFORMATION
  Report Type: Spontaneous
  Country: US (occurrence: US)
  Receive Date: 20251111
  Receipt Date: 20251226
  Transmission Date: 20260119
  Serious: Yes (Other)
  Sender: CSL BEHRING
  Company Number: US-BEH-2025224179

PATIENT
  Age: 48 Year
  Sex: Female

DRUGS (3)
  1. ANDEMBRY [Suspect]
     Active Substance: GARADACIMAB-GXII
     Indication: Hereditary angioedema
     Dosage: 200 MG, QMT
     Route: 058
     Dates: start: 20251017
  2. ANDEMBRY [Suspect]
     Active Substance: GARADACIMAB-GXII
     Indication: Prophylaxis
     Dosage: 1.2 ML
     Route: 058
  3. ANDEMBRY [Suspect]
     Active Substance: GARADACIMAB-GXII
     Dosage: 200MG/1.2ML QMT
     Route: 058
     Dates: start: 202510

REACTIONS (25)
  - Hereditary angioedema [Recovering/Resolving]
  - Hereditary angioedema [Unknown]
  - Hereditary angioedema [Recovered/Resolved]
  - Fatigue [Unknown]
  - Asthenia [Unknown]
  - Malaise [Unknown]
  - Headache [Unknown]
  - Dry skin [Unknown]
  - Abdominal pain [Recovering/Resolving]
  - Rhinorrhoea [Recovering/Resolving]
  - Pain [Recovering/Resolving]
  - Insomnia [Recovering/Resolving]
  - Injection site bruising [Recovering/Resolving]
  - Neuralgia [Unknown]
  - Rhinorrhoea [Unknown]
  - Pain [Unknown]
  - Abdominal pain [Unknown]
  - Insomnia [Recovering/Resolving]
  - Fatigue [Unknown]
  - Allodynia [Unknown]
  - Injection site erythema [Unknown]
  - Injection site bruising [Unknown]
  - Injection site swelling [Unknown]
  - Injection site pruritus [Unknown]
  - Upper respiratory tract infection [Unknown]

NARRATIVE: CASE EVENT DATE: 20251001
